FAERS Safety Report 9696831 (Version 1)
Quarter: 2013Q4

REPORT INFORMATION
  Report Type: Spontaneous
  Country: US (occurrence: US)
  Receive Date: 20131119
  Receipt Date: 20131119
  Transmission Date: 20140711
  Serious: No
  Sender: FDA-Public Use
  Company Number: US-GILEAD-2007-0013507

PATIENT
  Age: 45 Year
  Sex: Female
  Weight: 69.85 kg

DRUGS (12)
  1. LETAIRIS [Suspect]
     Indication: PULMONARY ARTERIAL HYPERTENSION
     Route: 048
     Dates: start: 20070726
  2. LANOXIN [Concomitant]
     Route: 048
  3. ALDACTONE [Concomitant]
     Route: 048
  4. PAXIL [Concomitant]
     Route: 048
  5. REMERON [Concomitant]
     Route: 048
  6. REVATIO [Concomitant]
     Indication: PULMONARY HYPERTENSION
     Route: 048
  7. VISTARIL [Concomitant]
     Route: 048
  8. NEURONTIN [Concomitant]
     Route: 048
  9. LANTUS [Concomitant]
     Indication: DIABETES MELLITUS
     Route: 058
  10. GLIPIZIDE [Concomitant]
     Indication: DIABETES MELLITUS
     Route: 048
  11. NEXIUM [Concomitant]
     Route: 048
  12. ATIVAN [Concomitant]
     Route: 048

REACTIONS (2)
  - Abdominal discomfort [Unknown]
  - Dizziness [Unknown]
